FAERS Safety Report 20964177 (Version 1)
Quarter: 2022Q2

REPORT INFORMATION
  Report Type: Report from Study
  Country: BE (occurrence: None)
  Receive Date: 20220615
  Receipt Date: 20220615
  Transmission Date: 20220720
  Serious: Yes (Hospitalization)
  Sender: FDA-Public Use
  Company Number: 2022A220428

PATIENT
  Age: 68 Year
  Sex: Male
  Weight: 82.6 kg

DRUGS (9)
  1. ACALABRUTINIB [Suspect]
     Active Substance: ACALABRUTINIB
     Indication: Diffuse large B-cell lymphoma
     Route: 048
     Dates: start: 20210419
  2. NAVTEMADLIN [Suspect]
     Active Substance: NAVTEMADLIN
     Indication: Diffuse large B-cell lymphoma
     Route: 048
     Dates: start: 20210419
  3. FOLIC ACID [Concomitant]
     Active Substance: FOLIC ACID
     Route: 065
     Dates: start: 20210129
  4. ALOXI [Concomitant]
     Active Substance: PALONOSETRON HYDROCHLORIDE
     Route: 065
     Dates: start: 20220419
  5. IMODIUM [Concomitant]
     Active Substance: LOPERAMIDE HYDROCHLORIDE
     Route: 065
     Dates: start: 20220419
  6. BOOSTRIX POLIO (DIPHTHERIA VACCINE TOXOID, PERTUSSIS) [Concomitant]
     Route: 065
  7. DOMPERIDONE [Concomitant]
     Active Substance: DOMPERIDONE
     Route: 065
     Dates: start: 20220425
  8. ZYPREXA [Concomitant]
     Active Substance: OLANZAPINE
     Route: 065
     Dates: start: 20220425, end: 20220510
  9. TERBINAFINE [Concomitant]
     Active Substance: TERBINAFINE
     Route: 065
     Dates: start: 20220425, end: 20220426

REACTIONS (1)
  - Pneumonia moraxella [Recovered/Resolved]

NARRATIVE: CASE EVENT DATE: 20220523
